FAERS Safety Report 21628555 (Version 1)
Quarter: 2022Q4

REPORT INFORMATION
  Report Type: Spontaneous
  Country: US (occurrence: None)
  Receive Date: 20221121
  Receipt Date: 20221121
  Transmission Date: 20230112
  Serious: No
  Sender: FDA-Public Use
  Company Number: None

PATIENT
  Sex: Male

DRUGS (1)
  1. TESTOSTERONE CYPIONATE [Suspect]
     Active Substance: TESTOSTERONE CYPIONATE
     Dosage: OTHER QUANTITY : .25 ML;?OTHER FREQUENCY : WEEKLY;?
     Route: 030

REACTIONS (1)
  - Multiple use of single-use product [None]

NARRATIVE: CASE EVENT DATE: 20221121
